FAERS Safety Report 24586954 (Version 2)
Quarter: 2024Q4

REPORT INFORMATION
  Report Type: Spontaneous
  Country: US (occurrence: US)
  Receive Date: 20241107
  Receipt Date: 20241112
  Transmission Date: 20250115
  Serious: No
  Sender: AMGEN
  Company Number: US-AMGEN-USASP2024218367

PATIENT
  Sex: Female

DRUGS (1)
  1. RAVICTI [Suspect]
     Active Substance: GLYCEROL PHENYLBUTYRATE
     Indication: Argininosuccinate synthetase deficiency
     Dosage: 1.1 GRAM PER MILLILITRE, BID (1.1 GM/ML; 2MLORALTWICE DAILY)
     Route: 048
     Dates: start: 202002

REACTIONS (2)
  - Vomiting [Unknown]
  - Asthenia [Unknown]
